FAERS Safety Report 7359442-7 (Version None)
Quarter: 2011Q1

REPORT INFORMATION
  Report Type: 
  Country: None (occurrence: None)
  Receive Date: 20110317
  Receipt Date: 20091201
  Transmission Date: 20110831
  Serious: No
  Sender: FDA-Public Use
  Company Number: US-PFIZER INC-2009304771

PATIENT
  Age: 80 Year
  Sex: Male

DRUGS (3)
  1. PLAVIX [Suspect]
     Indication: CEREBROVASCULAR ACCIDENT
     Dosage: 75 MG, 2X/DAY
     Route: 048
     Dates: start: 20091111
  2. NORVASC [Suspect]
     Dosage: UNK
     Dates: start: 20091111
  3. PLAVIX [Suspect]
     Indication: PLATELET AGGREGATION ABNORMAL
     Dosage: 75 MG, DAILY
     Route: 048
     Dates: start: 20080101

REACTIONS (3)
  - ANXIETY [None]
  - OVERDOSE [None]
  - TREMOR [None]
